FAERS Safety Report 5526927-5 (Version None)
Quarter: 2007Q4

REPORT INFORMATION
  Report Type: 
  Country: None (occurrence: None)
  Receive Date: 20071127
  Receipt Date: 20071113
  Transmission Date: 20080405
  Serious: Yes (Other)
  Sender: FDA-Public Use
  Company Number: US-RANBAXY-2006US-04956

PATIENT

DRUGS (3)
  1. ISOTRETINOIN ORAL FAMILY [Suspect]
     Indication: DRUG USE FOR UNKNOWN INDICATION
     Dosage: 40 MG, 1 TAB ON ODD DAYS
     Route: 048
     Dates: start: 20061005, end: 20061213
  2. ISOTRETINOIN ORAL FAMILY [Suspect]
     Dosage: 40 MG, 2 TABS EVEN DAYS
     Route: 048
     Dates: start: 20061005, end: 20061213
  3. NUVARING [Concomitant]
     Indication: CONTRACEPTION
     Dosage: UNK

REACTIONS (2)
  - ABORTION SPONTANEOUS [None]
  - PREGNANCY [None]
